FAERS Safety Report 16757126 (Version 1)
Quarter: 2019Q3

REPORT INFORMATION
  Report Type: Spontaneous
  Country: GB (occurrence: GB)
  Receive Date: 20190829
  Receipt Date: 20190829
  Transmission Date: 20191005
  Serious: Yes (Other)
  Sender: FDA-Public Use
  Company Number: GB-TEVA-2019-GB-1098978

PATIENT
  Age: 30 Year
  Sex: Female
  Weight: 65 kg

DRUGS (6)
  1. GABAPENTIN. [Suspect]
     Active Substance: GABAPENTIN
     Dosage: 300 MILLIGRAM
     Dates: start: 20190705
  2. FLUCONAZOLE. [Concomitant]
     Active Substance: FLUCONAZOLE
     Dosage: TAKE ONE ON DAY 1, DAY 4 AND DAY 7
     Dates: start: 20190603, end: 20190604
  3. CORACTEN [Concomitant]
     Active Substance: NIFEDIPINE
     Dosage: 1 DOSAGE FORMS
     Dates: start: 20180705
  4. NORTRIPTYLINE [Concomitant]
     Active Substance: NORTRIPTYLINE
     Dosage: 1-3 AT NIGHT.
     Dates: start: 20180508
  5. CLOTRIMAZOLE. [Concomitant]
     Active Substance: CLOTRIMAZOLE
     Dosage: 1 DOSAGE FORMS, INSERT AT NIGHT.
     Dates: start: 20190603, end: 20190626
  6. DIAZEPAM. [Concomitant]
     Active Substance: DIAZEPAM
     Dosage: TAKE 0.5 OR 1, THREE TIMES DAILY
     Dates: start: 20190702

REACTIONS (2)
  - Depressed mood [Not Recovered/Not Resolved]
  - Suicidal ideation [Unknown]

NARRATIVE: CASE EVENT DATE: 20190716
